FAERS Safety Report 20423421 (Version 3)
Quarter: 2022Q1

REPORT INFORMATION
  Report Type: Report from Study
  Country: US (occurrence: None)
  Receive Date: 20220203
  Receipt Date: 20220228
  Transmission Date: 20220423
  Serious: Yes (Hospitalization)
  Sender: FDA-Public Use
  Company Number: US-Eisai Medical Research-EC-2022-107685

PATIENT
  Age: 75 Year
  Sex: Male

DRUGS (8)
  1. LENVIMA [Suspect]
     Active Substance: LENVATINIB
     Indication: Renal cell carcinoma
     Route: 048
     Dates: start: 20210811, end: 202108
  2. LENVIMA [Suspect]
     Active Substance: LENVATINIB
     Indication: Renal cancer
     Route: 048
     Dates: start: 20210822, end: 202109
  3. LENVIMA [Suspect]
     Active Substance: LENVATINIB
     Indication: Bone neoplasm
     Route: 048
     Dates: start: 20210914, end: 202111
  4. LENVIMA [Suspect]
     Active Substance: LENVATINIB
     Route: 048
     Dates: start: 20211123, end: 20220124
  5. LENVIMA [Suspect]
     Active Substance: LENVATINIB
     Route: 048
     Dates: start: 202201, end: 202202
  6. LENVIMA [Suspect]
     Active Substance: LENVATINIB
     Route: 048
     Dates: start: 202202
  7. EVEROLIMUS [Concomitant]
     Active Substance: EVEROLIMUS
  8. LOSARTAN/LOTENSIN [Concomitant]
     Dates: start: 2021

REACTIONS (2)
  - Transient ischaemic attack [Recovering/Resolving]
  - Arthralgia [Recovering/Resolving]

NARRATIVE: CASE EVENT DATE: 20220124
